FAERS Safety Report 16834224 (Version 1)
Quarter: 2019Q3

REPORT INFORMATION
  Report Type: Spontaneous
  Country: IT (occurrence: IT)
  Receive Date: 20190920
  Receipt Date: 20190920
  Transmission Date: 20191005
  Serious: Yes (Other)
  Sender: FDA-Public Use
  Company Number: IT-PFIZER INC-2019400647

PATIENT
  Age: 72 Year

DRUGS (2)
  1. CAPECITABINE. [Suspect]
     Active Substance: CAPECITABINE
     Indication: GASTRIC CANCER
     Dosage: UNK
     Route: 048
     Dates: start: 20190115
  2. OXALIPLATIN. [Suspect]
     Active Substance: OXALIPLATIN
     Indication: GASTRIC CANCER
     Dosage: UNK
     Route: 041
     Dates: start: 20180115

REACTIONS (4)
  - Alopecia [Unknown]
  - Paraesthesia [Unknown]
  - Thrombocytopenia [Unknown]
  - Dysgeusia [Unknown]

NARRATIVE: CASE EVENT DATE: 20190718
